FAERS Safety Report 8214596-5 (Version None)
Quarter: 2012Q1

REPORT INFORMATION
  Report Type: 
  Country: None (occurrence: None)
  Receive Date: 20120316
  Receipt Date: 20120313
  Transmission Date: 20120608
  Serious: Yes (Other)
  Sender: FDA-Public Use
  Company Number: US-BAYER-2012-025023

PATIENT
  Age: 65 Year
  Sex: Female
  Weight: 75 kg

DRUGS (5)
  1. ALEVE (CAPLET) [Suspect]
     Dosage: DAILY DOSE 2 DF
     Route: 048
  2. ALEVE (CAPLET) [Suspect]
     Dosage: DAILY DOSE 1 DF
     Route: 048
  3. ANASTROZOLE [Concomitant]
  4. VITAMIN TAB [Concomitant]
  5. ALEVE (CAPLET) [Suspect]
     Indication: ANALGESIC THERAPY
     Dosage: DAILY DOSE 3 DF
     Route: 048
     Dates: start: 20080101

REACTIONS (2)
  - GASTROOESOPHAGEAL REFLUX DISEASE [None]
  - OCULAR ICTERUS [None]
